FAERS Safety Report 10028144 (Version 1)
Quarter: 2014Q1

REPORT INFORMATION
  Report Type: Spontaneous
  Country: US (occurrence: None)
  Receive Date: 20140319
  Receipt Date: 20140319
  Transmission Date: 20141002
  Serious: Yes (Other)
  Sender: FDA-Public Use
  Company Number: 2235858

PATIENT
  Age: 66 Year
  Sex: Male
  Weight: 108.45 kg

DRUGS (7)
  1. OXALIPLATIN INJECTION (OXALIPLATIN) [Suspect]
     Indication: NEOPLASM MALIGNANT
     Route: 041
  2. XELODA [Concomitant]
  3. ZOFRAN [Concomitant]
  4. AMLODIPINE [Concomitant]
  5. BENAZEPRIL HCL [Concomitant]
  6. METOPROLOL [Concomitant]
  7. LEVEMIR [Concomitant]

REACTIONS (4)
  - Feeling cold [None]
  - Lip swelling [None]
  - Tremor [None]
  - Hypertension [None]
